FAERS Safety Report 24591590 (Version 2)
Quarter: 2024Q4

REPORT INFORMATION
  Report Type: Report from Study
  Country: US (occurrence: US)
  Receive Date: 20241108
  Receipt Date: 20241222
  Transmission Date: 20250115
  Serious: Yes (Death)
  Sender: JOHNSON AND JOHNSON
  Company Number: US-JNJFOC-20241115321

PATIENT
  Sex: Female

DRUGS (2)
  1. SPRAVATO [Suspect]
     Active Substance: ESKETAMINE
     Indication: Depression
     Dosage: ^^56 MG, 12 TOTAL DOSES^^
     Route: 045
     Dates: start: 20240523, end: 20240808
  2. SPRAVATO [Suspect]
     Active Substance: ESKETAMINE
     Dosage: ^^84 MG, 7 TOTAL DOSES^^
     Route: 045
     Dates: start: 20240822, end: 20241003

REACTIONS (1)
  - Completed suicide [Fatal]
